FAERS Safety Report 9507732 (Version 1)
Quarter: 2013Q3

REPORT INFORMATION
  Report Type: Spontaneous
  Country: DE (occurrence: DE)
  Receive Date: 20130909
  Receipt Date: 20130909
  Transmission Date: 20140515
  Serious: Yes (Hospitalization)
  Sender: FDA-Public Use
  Company Number: GXKR2013DE002881

PATIENT
  Age: 81 Year
  Sex: Female

DRUGS (3)
  1. ACETYLSALICYLIC ACID [Suspect]
     Indication: CORONARY ARTERY DISEASE
     Dosage: 100 MG, QD
     Route: 048
     Dates: start: 201210
  2. PLAVIX [Suspect]
     Indication: CORONARY ARTERY DISEASE
     Dosage: 75 MG, QD
     Route: 048
     Dates: start: 201210
  3. PRADAXA [Suspect]
     Indication: CORONARY ARTERY DISEASE
     Dosage: 110 MG, BID
     Route: 048
     Dates: start: 201210

REACTIONS (1)
  - Diverticulum intestinal haemorrhagic [Recovered/Resolved]
